FAERS Safety Report 4646170-1 (Version None)
Quarter: 2005Q2

REPORT INFORMATION
  Report Type: 
  Country: None (occurrence: None)
  Receive Date: 20050425
  Receipt Date: 20050407
  Transmission Date: 20051028
  Serious: Yes (Death, Hospitalization)
  Sender: FDA-Public Use
  Company Number: 10879

PATIENT
  Age: 71 Year
  Sex: Male

DRUGS (2)
  1. METHOTREXATE [Suspect]
     Indication: ACUTE MYELOID LEUKAEMIA
     Dosage: IT
     Route: 037
     Dates: start: 19970501
  2. METHOTREXATE [Suspect]
     Indication: METASTATIC NEOPLASM
     Dosage: IT
     Route: 037
     Dates: start: 19970501

REACTIONS (6)
  - DEMENTIA [None]
  - DEPRESSED LEVEL OF CONSCIOUSNESS [None]
  - DISEASE PROGRESSION [None]
  - HAEMORRHAGE [None]
  - LEUKOENCEPHALOPATHY [None]
  - PNEUMONIA [None]
